FAERS Safety Report 6490543-1 (Version None)
Quarter: 2009Q4

REPORT INFORMATION
  Report Type: 
  Country: None (occurrence: None)
  Receive Date: 20091211
  Receipt Date: 20091201
  Transmission Date: 20100525
  Serious: Yes (Death, Life-Threatening, Hospitalization, Other)
  Sender: FDA-Public Use
  Company Number: BE-PFIZER INC-2009304147

PATIENT
  Age: 77 Year
  Sex: Male
  Weight: 60.3 kg

DRUGS (8)
  1. ZYVOXID [Suspect]
     Indication: BACTERIAL DISEASE CARRIER
     Dosage: 600 MG, 2X/DAY
     Route: 048
     Dates: start: 20091103, end: 20091109
  2. ASAFLOW [Concomitant]
     Dosage: 80 MG, 1X/DAY
     Route: 048
  3. EMCONCOR [Concomitant]
     Dosage: 15 MG, 1X/DAY
     Route: 048
  4. IMODIUM [Concomitant]
     Dosage: 2 MG, AS NEEDED
     Route: 048
  5. LOSEC [Concomitant]
     Dosage: 20 MG, 1X/DAY
     Route: 048
  6. RISPERDAL [Concomitant]
     Dosage: 0.25 MG, 1X/DAY
     Route: 048
     Dates: start: 20091105
  7. AMLOR [Concomitant]
     Dosage: 10 MG, 1X/DAY
     Route: 048
  8. VANCOMYCIN [Concomitant]
     Indication: URINARY TRACT INFECTION
     Dosage: UNK
     Dates: start: 20091029, end: 20091103

REACTIONS (1)
  - PARTIAL SEIZURES [None]
